FAERS Safety Report 5175276-6 (Version None)
Quarter: 2006Q4

REPORT INFORMATION
  Report Type: 
  Country: None (occurrence: None)
  Receive Date: 20061211
  Receipt Date: 20061211
  Transmission Date: 20070319
  Serious: Yes (Other)
  Sender: FDA-Public Use
  Company Number: None

PATIENT
  Age: 71 Year
  Sex: Male

DRUGS (2)
  1. WARFARIN SODIUM [Suspect]
     Indication: CEREBROVASCULAR ACCIDENT
     Dosage: TAKE 1 1/2 TAB DAILY
  2. WARFARIN SODIUM [Suspect]
     Indication: HYPERTENSION
     Dosage: TAKE 1 1/2 TAB DAILY

REACTIONS (1)
  - INTERNATIONAL NORMALISED RATIO INCREASED [None]
